FAERS Safety Report 17760436 (Version 16)
Quarter: 2021Q1

REPORT INFORMATION
  Report Type: Report from Study
  Country: DE (occurrence: DE)
  Receive Date: 20200508
  Receipt Date: 20210128
  Transmission Date: 20210419
  Serious: Yes (Hospitalization, Other)
  Sender: FDA-Public Use
  Company Number: DE-ALNYLAM PHARMACEUTICALS, INC.-ALN-2020-000611

PATIENT

DRUGS (10)
  1. MORPHINE [Concomitant]
     Active Substance: MORPHINE
     Indication: PAIN
     Dosage: 30 MILLIGRAM PER MILLILITRE NACL
     Route: 042
     Dates: start: 20200515
  2. GIVOSIRAN. [Suspect]
     Active Substance: GIVOSIRAN
     Indication: PORPHYRIA ACUTE
     Dosage: 1.25 MILLIGRAM/KILOGRAM, MONTHLY
     Route: 058
     Dates: start: 20190115, end: 20200422
  3. OLANZAPINE. [Concomitant]
     Active Substance: OLANZAPINE
     Indication: DECREASED APPETITE
     Dosage: 5 MILLIGRAM, QD
     Route: 048
     Dates: start: 2017
  4. PANTOPRAZOLE [Concomitant]
     Active Substance: PANTOPRAZOLE
     Indication: GASTRITIS
     Dosage: 40 MILLIGRAM, PRN
     Route: 048
     Dates: start: 20191029, end: 202001
  5. LEUPRORELIN [Concomitant]
     Active Substance: LEUPROLIDE ACETATE
     Indication: PROPHYLAXIS
     Dosage: 22.5 MILLIGRAM, DEPOT FOR THREE MONTHS
     Route: 058
  6. MORPHINE [Concomitant]
     Active Substance: MORPHINE
     Indication: PORPHYRIA ACUTE
     Dosage: 30 MILLIGRAM, PRN
     Route: 048
     Dates: start: 20190619
  7. VOMEX A [Concomitant]
     Active Substance: DIMENHYDRINATE
     Indication: NAUSEA
     Dosage: 50 MILLIGRAM, PRN
     Route: 048
     Dates: start: 20200515
  8. OLANZAPINE. [Concomitant]
     Active Substance: OLANZAPINE
     Indication: NAUSEA
  9. HAEM ARGINATE [Concomitant]
     Indication: PORPHYRIA ACUTE
     Dosage: UNK
  10. CLEXANE [Concomitant]
     Active Substance: ENOXAPARIN SODIUM
     Indication: PROPHYLAXIS
     Dosage: 0.4 MILLILITER, QD
     Route: 042
     Dates: start: 20200427

REACTIONS (2)
  - Blood homocysteine increased [Not Recovered/Not Resolved]
  - Pancreatitis [Recovered/Resolved]

NARRATIVE: CASE EVENT DATE: 20200427
